FAERS Safety Report 7831738-1 (Version None)
Quarter: 2011Q4

REPORT INFORMATION
  Report Type: 
  Country: None (occurrence: None)
  Receive Date: 20111021
  Receipt Date: 20111017
  Transmission Date: 20120403
  Serious: Yes (Death)
  Sender: FDA-Public Use
  Company Number: UG-ABBOTT-11P-165-0866142-01

PATIENT
  Sex: Female

DRUGS (2)
  1. COTRIM [Concomitant]
     Indication: PRODUCT USED FOR UNKNOWN INDICATION
     Dates: start: 20060316, end: 20110927
  2. LOPINAVIR/RITONAVIR [Suspect]
     Indication: HIV INFECTION
     Dates: start: 20110426, end: 20110927

REACTIONS (2)
  - ANAEMIA [None]
  - DIARRHOEA [None]
